FAERS Safety Report 23450831 (Version 1)
Quarter: 2024Q1

REPORT INFORMATION
  Report Type: Other
  Country: ZA (occurrence: None)
  Receive Date: 20240129
  Receipt Date: 20240129
  Transmission Date: 20240410
  Serious: Yes (Other)
  Sender: FDA-Public Use
  Company Number: ZA-ROCHE-3398581

PATIENT
  Sex: Male

DRUGS (2)
  1. OCREVUS [Suspect]
     Active Substance: OCRELIZUMAB
     Indication: Relapsing-remitting multiple sclerosis
     Dosage: THERAFTER 600MG EVERY SIX MONTHS
     Route: 041
     Dates: start: 20221129
  2. OCREVUS [Suspect]
     Active Substance: OCRELIZUMAB
     Indication: Multiple sclerosis

REACTIONS (7)
  - Quadriparesis [Unknown]
  - Multiple sclerosis [Unknown]
  - Multiple sclerosis [Unknown]
  - Hypoaesthesia [Unknown]
  - Coordination abnormal [Unknown]
  - Cerebellar ataxia [Unknown]
  - Magnetic resonance imaging abnormal [Unknown]
